FAERS Safety Report 8012646-2 (Version None)
Quarter: 2011Q4

REPORT INFORMATION
  Report Type: 
  Country: None (occurrence: None)
  Receive Date: 20111222
  Receipt Date: 20111125
  Transmission Date: 20120403
  Serious: Yes (Death, Hospitalization)
  Sender: FDA-Public Use
  Company Number: MTX-AE-11-067

PATIENT
  Age: 85 Year
  Sex: Female

DRUGS (17)
  1. AMLODIPINE BESYLATE [Concomitant]
  2. MOBIC [Concomitant]
  3. BLOPRESS (CANDESARTAN CILEXETIL) [Concomitant]
  4. MUCODYNE (CARBOCISTEINE) [Concomitant]
  5. METHOTREXATE [Suspect]
     Indication: RHEUMATOID ARTHRITIS
     Dosage: 2 MILLIGRAM/WK
  6. ORENCIA FOR INJECTION 250 MG/VIAL (ABATACEPT) [Concomitant]
  7. AZULFIDINE [Concomitant]
  8. FERROMIA (FERROUS SODIUM CITRATE) [Concomitant]
  9. PREDNISOLONE [Concomitant]
  10. MECOBALAMIN [Concomitant]
  11. FOSAMAX [Concomitant]
  12. RANITAC (RANITIDINE HCL) [Concomitant]
  13. EPOGEN [Concomitant]
  14. CEFTRIAXONE [Concomitant]
  15. LASIX [Concomitant]
  16. FOLIC ACID [Concomitant]
  17. CEROCRAL (IFENPRODIL TARTRATE) [Concomitant]

REACTIONS (6)
  - REFUSAL OF TREATMENT BY PATIENT [None]
  - MARROW HYPERPLASIA [None]
  - MYELODYSPLASTIC SYNDROME [None]
  - NASOPHARYNGITIS [None]
  - STOMATITIS [None]
  - CARDIAC FAILURE [None]
